FAERS Safety Report 8645999 (Version 8)
Quarter: 2013Q2

REPORT INFORMATION
  Report Type: Spontaneous
  Country: US (occurrence: US)
  Receive Date: 20120702
  Receipt Date: 20130610
  Transmission Date: 20140414
  Serious: Yes (Hospitalization, Disabling, Other)
  Sender: FDA-Public Use
  Company Number: US-009507513-1206USA04951

PATIENT
  Sex: Female
  Weight: 84.81 kg

DRUGS (17)
  1. FOSAMAX [Suspect]
     Indication: OSTEOPOROSIS
     Dosage: 70 MG, QW
     Route: 048
     Dates: start: 200210, end: 201004
  2. FOSAMAX [Suspect]
     Indication: OSTEOPENIA
  3. CALCIUM (UNSPECIFIED) (+) VITAMIN D (UNSPECIFIED) [Concomitant]
     Indication: OSTEOPOROSIS
     Dosage: UNK, BID
  4. CALCIUM (UNSPECIFIED) (+) VITAMIN D (UNSPECIFIED) [Concomitant]
     Indication: OSTEOPENIA
  5. MIACALCIN [Concomitant]
     Indication: OSTEOPOROSIS
  6. MIRAPEX [Concomitant]
     Indication: RESTLESS LEGS SYNDROME
  7. MIRAPEX [Concomitant]
     Indication: PERIODIC LIMB MOVEMENT DISORDER
  8. DITROPAN XL [Concomitant]
  9. VITAMIN D (UNSPECIFIED) [Concomitant]
     Indication: OSTEOPOROSIS
     Dosage: 800 IU, QD
  10. VITAMIN D (UNSPECIFIED) [Concomitant]
     Indication: OSTEOPENIA
  11. CALCIUM (UNSPECIFIED) [Concomitant]
     Indication: OSTEOPOROSIS
     Dosage: 1500 MG, UNK
  12. CALCIUM (UNSPECIFIED) [Concomitant]
     Indication: OSTEOPENIA
  13. MAGNESIUM (UNSPECIFIED) [Concomitant]
     Indication: OSTEOPOROSIS
     Dosage: 400 MG, QD
  14. MAGNESIUM (UNSPECIFIED) [Concomitant]
     Indication: OSTEOPENIA
  15. VITAMINS (UNSPECIFIED) [Concomitant]
     Dosage: UNK
     Dates: start: 19800101
  16. BONIVA [Concomitant]
     Indication: OSTEOPENIA
     Dosage: 150 MG, UNK
     Dates: start: 200803, end: 200807
  17. BONIVA [Concomitant]
     Indication: OSTEOPOROSIS

REACTIONS (51)
  - Femur fracture [Unknown]
  - Surgery [Unknown]
  - Femur fracture [Unknown]
  - Surgery [Unknown]
  - Femur fracture [Not Recovered/Not Resolved]
  - Low turnover osteopathy [Not Recovered/Not Resolved]
  - Osteoporosis [Not Recovered/Not Resolved]
  - Stress fracture [Not Recovered/Not Resolved]
  - Hip arthroplasty [Unknown]
  - Vitrectomy [Unknown]
  - Blindness [Unknown]
  - Maculopathy [Unknown]
  - Joint arthroplasty [Unknown]
  - Device dislocation [Not Recovered/Not Resolved]
  - Intervertebral disc operation [Unknown]
  - Spinal laminectomy [Unknown]
  - Hip arthroplasty [Unknown]
  - Device dislocation [Unknown]
  - Carpal tunnel syndrome [Unknown]
  - Device failure [Unknown]
  - Hypercholesterolaemia [Unknown]
  - Hypothyroidism [Unknown]
  - Vitreous disorder [Recovered/Resolved]
  - Macular cyst [Recovering/Resolving]
  - Macular hole [Recovering/Resolving]
  - Macular pseudohole [Recovering/Resolving]
  - Holmes-Adie pupil [Unknown]
  - Viral infection [Unknown]
  - Animal bite [Unknown]
  - Poor quality sleep [Unknown]
  - Tremor [Unknown]
  - Hypotension [Unknown]
  - Muscle twitching [Unknown]
  - Flushing [Unknown]
  - Blood pressure increased [Unknown]
  - Feeling jittery [Unknown]
  - Amnesia [Unknown]
  - Cerebrovascular disorder [Unknown]
  - Depression [Unknown]
  - Anxiety [Unknown]
  - Transient ischaemic attack [Unknown]
  - Electrocardiogram abnormal [Unknown]
  - Lumbar spinal stenosis [Unknown]
  - Intervertebral disc protrusion [Unknown]
  - Nuclear magnetic resonance imaging brain abnormal [Unknown]
  - Gait disturbance [Unknown]
  - Drug ineffective [Unknown]
  - Back pain [Unknown]
  - Malaise [Unknown]
  - Pain in extremity [Unknown]
  - Pain in extremity [Unknown]
